FAERS Safety Report 16885740 (Version 3)
Quarter: 2019Q4

REPORT INFORMATION
  Report Type: Report from Study
  Country: US (occurrence: US)
  Receive Date: 20191004
  Receipt Date: 20191121
  Transmission Date: 20200122
  Serious: Yes (Other)
  Sender: FDA-Public Use
  Company Number: US-ACTELION-A-US2018-165208

PATIENT
  Age: 71 Year
  Sex: Female
  Weight: 98.87 kg

DRUGS (14)
  1. KLOR-CON [Concomitant]
     Active Substance: POTASSIUM CHLORIDE
     Dosage: 20 MEQ, BID
  2. SYMBICORT [Concomitant]
     Active Substance: BUDESONIDE\FORMOTEROL FUMARATE DIHYDRATE
     Dosage: UNK, PRN
  3. XARELTO [Concomitant]
     Active Substance: RIVAROXABAN
  4. OPSUMIT [Suspect]
     Active Substance: MACITENTAN
     Dosage: 10 MG, QD
     Route: 048
     Dates: start: 20181226
  5. OPSUMIT [Suspect]
     Active Substance: MACITENTAN
     Indication: PULMONARY ARTERIAL HYPERTENSION
     Dosage: 10 MG, QAM
     Route: 048
     Dates: start: 20171201
  6. PRESERVISION LUTEIN [Concomitant]
     Active Substance: MINERALS\VITAMINS
     Dosage: UNK
  7. METRONIDAZOLE. [Concomitant]
     Active Substance: METRONIDAZOLE
     Dosage: 0.75 %, QD
  8. OXYGEN. [Concomitant]
     Active Substance: OXYGEN
  9. ASPIRIN. [Concomitant]
     Active Substance: ASPIRIN
     Dosage: 325 MG, QPM
  10. ADCIRCA [Concomitant]
     Active Substance: TADALAFIL
     Dosage: UNK
     Dates: start: 2013, end: 201801
  11. FUROSEMIDE. [Concomitant]
     Active Substance: FUROSEMIDE
     Dosage: 40 MG, BID
  12. SPIRIVA [Concomitant]
     Active Substance: TIOTROPIUM BROMIDE MONOHYDRATE
     Dosage: 18 MCG, 1-2 INHALATIONS
  13. IPRATROPIUM/ALBUTEROL [Concomitant]
     Active Substance: ALBUTEROL\IPRATROPIUM
     Dosage: Q4H PRN
  14. ENALAPRIL [Concomitant]
     Active Substance: ENALAPRIL
     Dosage: 2.5 UNK, UNK

REACTIONS (21)
  - Headache [Recovered/Resolved]
  - Unevaluable event [Recovered/Resolved]
  - Cough [Not Recovered/Not Resolved]
  - Middle insomnia [Recovered/Resolved]
  - Urine abnormality [Recovered/Resolved]
  - Haemoglobin decreased [Recovered/Resolved]
  - Seasonal allergy [Unknown]
  - Abdominal discomfort [Unknown]
  - Malaise [Unknown]
  - Hepatic function abnormal [Not Recovered/Not Resolved]
  - Road traffic accident [Unknown]
  - Haematocrit decreased [Recovered/Resolved]
  - Bronchitis [Unknown]
  - Pulmonary embolism [Unknown]
  - Micturition urgency [Recovered/Resolved]
  - Dysuria [Recovered/Resolved]
  - Pneumonia [Unknown]
  - Pyrexia [Unknown]
  - Thrombosis [Unknown]
  - Palpitations [Recovered/Resolved]
  - Hot flush [Unknown]

NARRATIVE: CASE EVENT DATE: 2017
